FAERS Safety Report 4654476-5 (Version None)
Quarter: 2005Q2

REPORT INFORMATION
  Report Type: 
  Country: None (occurrence: None)
  Receive Date: 20050404
  Receipt Date: 20050104
  Transmission Date: 20051028
  Serious: No
  Sender: FDA-Public Use
  Company Number: USA050187433

PATIENT
  Age: 56 Year
  Sex: Female

DRUGS (4)
  1. CYMBALTA [Suspect]
     Dosage: 30 MG DAY
  2. LANTUS [Concomitant]
  3. NOVOLOG [Concomitant]
  4. DIOVAN [Concomitant]

REACTIONS (7)
  - BACK PAIN [None]
  - CONFUSIONAL STATE [None]
  - DISTURBANCE IN ATTENTION [None]
  - HEADACHE [None]
  - SOMNOLENCE [None]
  - SPEECH DISORDER [None]
  - STOMACH DISCOMFORT [None]
